FAERS Safety Report 22376361 (Version 2)
Quarter: 2023Q2

REPORT INFORMATION
  Report Type: Spontaneous
  Country: IT (occurrence: None)
  Receive Date: 20230527
  Receipt Date: 20230628
  Transmission Date: 20230721
  Serious: Yes (Hospitalization)
  Sender: FDA-Public Use
  Company Number: 2023A119824

PATIENT
  Age: 21489 Day
  Sex: Female

DRUGS (1)
  1. BUDESONIDE\FORMOTEROL\GLYCOPYRRONIUM [Suspect]
     Active Substance: BUDESONIDE\FORMOTEROL\GLYCOPYRRONIUM
     Indication: Chronic obstructive pulmonary disease
     Dosage: TWO INHALATIONS TWO TIMES A DAY
     Route: 055
     Dates: start: 202301

REACTIONS (9)
  - Road traffic accident [Recovering/Resolving]
  - Clavicle fracture [Recovering/Resolving]
  - Abdominal distension [Unknown]
  - Influenza [Recovered/Resolved]
  - Weight loss poor [Unknown]
  - Headache [Unknown]
  - Incorrect dose administered [Unknown]
  - Device delivery system issue [Unknown]
  - Product packaging quantity issue [Unknown]

NARRATIVE: CASE EVENT DATE: 20230101
